FAERS Safety Report 9466396 (Version 1)
Quarter: 2013Q3

REPORT INFORMATION
  Report Type: Spontaneous
  Country: US (occurrence: None)
  Receive Date: 20130816
  Receipt Date: 20130816
  Transmission Date: 20140515
  Serious: Yes (Disabling, Other)
  Sender: FDA-Public Use
  Company Number: None

PATIENT
  Age: 40 Year
  Sex: Female

DRUGS (1)
  1. LUPRON [Suspect]
     Indication: ENDOMETRIOSIS
     Dosage: 11.25 2X
     Dates: start: 200502, end: 200803

REACTIONS (19)
  - Pollakiuria [None]
  - Vitamin D deficiency [None]
  - Nausea [None]
  - Thirst [None]
  - Somnolence [None]
  - Headache [None]
  - Flatulence [None]
  - Eructation [None]
  - Vision blurred [None]
  - Diplopia [None]
  - Feeling hot [None]
  - Hyperhidrosis [None]
  - Bone pain [None]
  - Muscular weakness [None]
  - Amnesia [None]
  - Weight fluctuation [None]
  - Throat tightness [None]
  - Thyroid disorder [None]
  - Erythema [None]
